FAERS Safety Report 11460251 (Version 1)
Quarter: 2015Q3

REPORT INFORMATION
  Report Type: Spontaneous
  Country: US (occurrence: US)
  Receive Date: 20150904
  Receipt Date: 20150904
  Transmission Date: 20151125
  Serious: Yes (Other)
  Sender: FDA-Public Use
  Company Number: US-GLAXOSMITHKLINE-US2015GSK125676

PATIENT
  Age: 49 Year
  Sex: Male

DRUGS (8)
  1. MOMETASONE FUROATE. [Suspect]
     Active Substance: MOMETASONE FUROATE
     Dosage: 110 MG (1 PUFF), QD
     Route: 065
  2. CLOBETASOL [Concomitant]
     Active Substance: CLOBETASOL
     Indication: PRODUCT USED FOR UNKNOWN INDICATION
     Dosage: UNK
     Route: 065
  3. AZELASTINE [Concomitant]
     Active Substance: AZELASTINE
     Indication: PRODUCT USED FOR UNKNOWN INDICATION
     Dosage: UNK
     Route: 065
  4. FLUTICASONE PROPIONATE+SALMETEROL XINAFOATE [Suspect]
     Active Substance: FLUTICASONE PROPIONATE\SALMETEROL XINAFOATE
     Indication: COUGH
     Dosage: 250?G/50MG, BID
     Route: 065
  5. FLUTICASONE PROPIONATE+SALMETEROL XINAFOATE [Suspect]
     Active Substance: FLUTICASONE PROPIONATE\SALMETEROL XINAFOATE
     Indication: DYSPNOEA
  6. FLUTICASONE PROPIONATE+SALMETEROL XINAFOATE [Suspect]
     Active Substance: FLUTICASONE PROPIONATE\SALMETEROL XINAFOATE
     Indication: WHEEZING
  7. HYDROXYZINE [Concomitant]
     Active Substance: HYDROXYZINE\HYDROXYZINE HYDROCHLORIDE
     Indication: PRODUCT USED FOR UNKNOWN INDICATION
     Dosage: UNK
     Route: 065
  8. MOMETASONE FUROATE. [Suspect]
     Active Substance: MOMETASONE FUROATE
     Indication: SEASONAL ALLERGY
     Dosage: 2 SPRAYS EACH NOSTRIL, QD
     Route: 065

REACTIONS (3)
  - Vision blurred [Unknown]
  - Chorioretinopathy [Recovered/Resolved]
  - Visual acuity reduced [Unknown]
